FAERS Safety Report 4754219-0 (Version None)
Quarter: 2005Q3

REPORT INFORMATION
  Report Type: 
  Country: None (occurrence: None)
  Receive Date: 20050825
  Receipt Date: 20050812
  Transmission Date: 20060218
  Serious: Yes (Other)
  Sender: FDA-Public Use
  Company Number: 107309ISR

PATIENT
  Age: 79 Year
  Sex: Male

DRUGS (4)
  1. MEGESTROL ACETATE [Suspect]
     Indication: RENAL CELL CARCINOMA STAGE UNSPECIFIED
     Dosage: 480 MILLIGRAM
  2. FOSINOPRIL SODIUM [Concomitant]
  3. METOPROLOL [Concomitant]
  4. OMEPRAZOLE [Concomitant]

REACTIONS (2)
  - DERMATITIS ALLERGIC [None]
  - RASH [None]
